FAERS Safety Report 17077904 (Version 1)
Quarter: 2019Q4

REPORT INFORMATION
  Report Type: Spontaneous
  Country: CA (occurrence: CA)
  Receive Date: 20191126
  Receipt Date: 20191126
  Transmission Date: 20200122
  Serious: Yes (Life-Threatening, Hospitalization)
  Sender: FDA-Public Use
  Company Number: CA-TEVA-2019-CA-1140951

PATIENT
  Age: 41 Year
  Sex: Male

DRUGS (6)
  1. FENTANYL. [Suspect]
     Active Substance: FENTANYL
     Indication: PRODUCT USED FOR UNKNOWN INDICATION
     Route: 065
  2. CABOTEGRAVIR [Concomitant]
     Active Substance: CABOTEGRAVIR
     Route: 030
  3. RILPIVIRINE [Concomitant]
     Active Substance: RILPIVIRINE
     Route: 030
  4. CABOTEGRAVIR [Concomitant]
     Active Substance: CABOTEGRAVIR
     Indication: HIV INFECTION
     Route: 030
  5. COCAINE [Suspect]
     Active Substance: COCAINE
     Indication: PRODUCT USED FOR UNKNOWN INDICATION
     Route: 065
  6. RILPIVIRINE [Concomitant]
     Active Substance: RILPIVIRINE
     Indication: HIV INFECTION
     Route: 030

REACTIONS (3)
  - Acute kidney injury [Recovering/Resolving]
  - Overdose [Recovering/Resolving]
  - Respiratory acidosis [Recovering/Resolving]
